FAERS Safety Report 9439772 (Version 1)
Quarter: 2013Q3

REPORT INFORMATION
  Report Type: Spontaneous
  Country: US (occurrence: None)
  Receive Date: 20130802
  Receipt Date: 20130802
  Transmission Date: 20140515
  Serious: Yes (Life-Threatening, Hospitalization, Disabling)
  Sender: FDA-Public Use
  Company Number: None

PATIENT
  Age: 42 Year
  Sex: Female
  Weight: 68.04 kg

DRUGS (1)
  1. BEYAZ [Suspect]
     Indication: HAEMORRHAGE
     Dosage: ONE  QD, ORAL?3 WEEKS - APPROX.
     Route: 048

REACTIONS (4)
  - Fall [None]
  - Ill-defined disorder [None]
  - Cerebrovascular accident [None]
  - Cerebral artery thrombosis [None]
